FAERS Safety Report 6550415-0 (Version None)
Quarter: 2010Q1

REPORT INFORMATION
  Report Type: 
  Country: None (occurrence: None)
  Receive Date: 20100125
  Receipt Date: 20100115
  Transmission Date: 20100710
  Serious: Yes (Hospitalization)
  Sender: FDA-Public Use
  Company Number: US-ABBOTT-10P-163-0619668-00

PATIENT
  Sex: Female
  Weight: 65.376 kg

DRUGS (3)
  1. HUMIRA [Suspect]
     Indication: RHEUMATOID ARTHRITIS
     Route: 058
     Dates: start: 20080906, end: 20081201
  2. HUMIRA [Suspect]
     Dates: end: 20090301
  3. HUMIRA [Suspect]
     Dates: end: 20090601

REACTIONS (5)
  - PLEURISY [None]
  - PNEUMONIA [None]
  - PYREXIA [None]
  - SINUSITIS [None]
  - TOOTH INFECTION [None]
